FAERS Safety Report 10211702 (Version 1)
Quarter: 2014Q2

REPORT INFORMATION
  Report Type: Spontaneous
  Country: GB (occurrence: None)
  Receive Date: 20140528
  Receipt Date: 20140528
  Transmission Date: 20141212
  Serious: Yes (Other)
  Sender: FDA-Public Use
  Company Number: AUR-APL-2014-06044

PATIENT
  Age: 63 Year
  Sex: Female
  Weight: 98 kg

DRUGS (10)
  1. AMOXICILLIN [Suspect]
     Indication: PRODUCT USED FOR UNKNOWN INDICATION
     Dates: start: 20140502
  2. SANDOSTATIN LAR [Suspect]
     Indication: PANCREATIC CARCINOMA
     Dosage: (30 MG), UNKNOWN
     Dates: start: 20140415, end: 20140415
  3. AMITRIPTYLINE HYDROCHLORIDE [Concomitant]
  4. ATORVASTATIN [Concomitant]
  5. BENDROFLUMETHIAZIDE [Concomitant]
  6. CITALOPRAM [Concomitant]
  7. LISINOPRIL [Concomitant]
  8. METFORMIN (METFORMIN) [Concomitant]
  9. OMEPRAZOLE [Concomitant]
  10. TRAMADOL [Concomitant]

REACTIONS (4)
  - Rash pruritic [None]
  - Urticaria [None]
  - Erythema [None]
  - Rash erythematous [None]
